FAERS Safety Report 16739003 (Version 3)
Quarter: 2020Q1

REPORT INFORMATION
  Report Type: Spontaneous
  Country: ES (occurrence: ES)
  Receive Date: 20190826
  Receipt Date: 20200225
  Transmission Date: 20200409
  Serious: No
  Sender: FDA-Public Use
  Company Number: ES-LUPIN PHARMACEUTICALS INC.-2019-04995

PATIENT
  Age: 69 Year
  Sex: Male

DRUGS (6)
  1. SITAGLIPTINA [SITAGLIPTIN] [Concomitant]
     Dosage: 50 MILLIGRAM, BID
     Route: 065
  2. TAMSULOSINA [TAMSULOSIN] [Concomitant]
     Active Substance: TAMSULOSIN
     Indication: BENIGN PROSTATIC HYPERPLASIA
     Dosage: 0.4 MILLIGRAM, QD (1 DF, 0-0-1)
     Route: 065
  3. REPAGLINIDE. [Interacting]
     Active Substance: REPAGLINIDE
     Indication: TYPE 2 DIABETES MELLITUS
     Dosage: 1 MILLIGRAM, TID (1/2/1) (4 DF)
     Route: 065
  4. REPAGLINIDE. [Interacting]
     Active Substance: REPAGLINIDE
     Dosage: 1 MILLIGRAM, BID (1-0-1)
     Route: 065
  5. VALSARTAN. [Suspect]
     Active Substance: VALSARTAN
     Indication: HYPERTENSION
     Dosage: 160 MILLIGRAM, QD (1 DF, 1-0-0)
     Route: 065
  6. SITAGLIPTINA [SITAGLIPTIN] [Concomitant]
     Indication: TYPE 2 DIABETES MELLITUS
     Dosage: 100 MILLIGRAM, QD (1 DF, 0-1-0)
     Route: 065

REACTIONS (2)
  - Drug interaction [Unknown]
  - Hypoglycaemia [Recovered/Resolved]
